FAERS Safety Report 9938242 (Version 1)
Quarter: 2014Q1

REPORT INFORMATION
  Report Type: Spontaneous
  Country: US (occurrence: US)
  Receive Date: 20140303
  Receipt Date: 20140303
  Transmission Date: 20141002
  Serious: No
  Sender: FDA-Public Use
  Company Number: US-ABBVIE-13P-163-1031078-00

PATIENT
  Sex: Male

DRUGS (3)
  1. HUMIRA [Suspect]
     Indication: CROHN^S DISEASE
     Dates: start: 20121113, end: 20121113
  2. HUMIRA [Suspect]
     Dates: start: 20121127, end: 20121127
  3. HUMIRA [Suspect]
     Dates: start: 20121211

REACTIONS (3)
  - Acne [Not Recovered/Not Resolved]
  - Tinea cruris [Not Recovered/Not Resolved]
  - Folliculitis [Not Recovered/Not Resolved]
